FAERS Safety Report 9680048 (Version 1)
Quarter: 2013Q4

REPORT INFORMATION
  Report Type: Spontaneous
  Country: DE (occurrence: DE)
  Receive Date: 20131110
  Receipt Date: 20131110
  Transmission Date: 20140711
  Serious: Yes (Hospitalization)
  Sender: FDA-Public Use
  Company Number: DE-AMGEN-DEUSP2013078871

PATIENT
  Sex: Male

DRUGS (3)
  1. ENBREL [Suspect]
     Indication: RHEUMATOID ARTHRITIS
     Dosage: 50 MG, WEEKLY
     Route: 065
     Dates: start: 20061101
  2. PREDNISOLON                        /00016201/ [Concomitant]
     Dosage: 5 MG, UNK
  3. ASS [Concomitant]
     Dosage: 100 MG, UNK

REACTIONS (1)
  - Cholelithiasis [Recovered/Resolved]
